FAERS Safety Report 7694251-0 (Version None)
Quarter: 2011Q3

REPORT INFORMATION
  Report Type: 
  Country: None (occurrence: None)
  Receive Date: 20110819
  Receipt Date: 20110812
  Transmission Date: 20111222
  Serious: Yes (Hospitalization)
  Sender: FDA-Public Use
  Company Number: US-GLAXOSMITHKLINE-A0940915A

PATIENT
  Age: 52 Year
  Sex: Female

DRUGS (11)
  1. DILTIAZEM [Concomitant]
  2. PRAVASTATIN [Concomitant]
  3. CITALOPRAM HYDROBROMIDE [Concomitant]
  4. UNSPECIFIED MEDICATION [Concomitant]
  5. ALBUTEROL [Concomitant]
  6. COUMADIN [Concomitant]
  7. LEVOTHYROXINE SODIUM [Concomitant]
  8. LOVENOX [Concomitant]
  9. ADVAIR DISKUS 100/50 [Suspect]
     Indication: ASTHMA
     Dosage: 1PUFF TWICE PER DAY
     Route: 055
     Dates: start: 20090101
  10. RANITIDINE [Concomitant]
  11. LORATADINE [Concomitant]

REACTIONS (1)
  - ASTHMA [None]
